FAERS Safety Report 14814203 (Version 1)
Quarter: 2018Q2

REPORT INFORMATION
  Report Type: Report from Study
  Country: ES (occurrence: ES)
  Receive Date: 20180426
  Receipt Date: 20180426
  Transmission Date: 20180711
  Serious: Yes (Hospitalization, Other)
  Sender: FDA-Public Use
  Company Number: ES-TEVA-2018-ES-886451

PATIENT
  Age: 64 Year
  Sex: Male
  Weight: 62.5 kg

DRUGS (24)
  1. VINCRISTINE [Suspect]
     Active Substance: VINCRISTINE
     Indication: CHRONIC LYMPHOCYTIC LEUKAEMIA
     Dosage: DATE OF LAST DOSE PRIOR TO SAE: 14/SEP/2016
     Route: 065
     Dates: start: 2016
  2. PREDNISOLONA [Suspect]
     Active Substance: PREDNISOLONE
     Indication: CHRONIC LYMPHOCYTIC LEUKAEMIA
     Dosage: DATE OF LAST DOSE PRIOR TO SAE: 14/SEP/2016
     Route: 065
     Dates: start: 2016
  3. MEGESTROL [Concomitant]
     Active Substance: MEGESTROL
     Dosage: DATE OF LAST DOSE PRIOR TO SAE: 14/SEP/2016
     Route: 065
     Dates: start: 20170216
  4. ALLOPURINOL. [Concomitant]
     Active Substance: ALLOPURINOL
     Route: 065
     Dates: start: 20160428
  5. SERTRALINE [Concomitant]
     Active Substance: SERTRALINE HYDROCHLORIDE
     Route: 065
     Dates: start: 20160620
  6. OBINUTUZUMAB. [Suspect]
     Active Substance: OBINUTUZUMAB
     Indication: CHRONIC LYMPHOCYTIC LEUKAEMIA
     Dosage: VIAL. LAST DOSE PRIOR TO SAE 26/APR/2016 AND ON 14/SEP/2016
     Dates: start: 20160426
  7. METOCLOPRAMIDE. [Concomitant]
     Active Substance: METOCLOPRAMIDE
     Route: 065
     Dates: start: 20160425
  8. DOXORUBICIN [Suspect]
     Active Substance: DOXORUBICIN
     Indication: CHRONIC LYMPHOCYTIC LEUKAEMIA
     Dosage: DATE OF LAST DOSE PRIOR TO SAE: 14/SEP/2016
     Route: 065
     Dates: start: 2016
  9. SEPTRIN FORTE [Concomitant]
     Active Substance: SULFAMETHOXAZOLE\TRIMETHOPRIM
     Route: 065
     Dates: start: 20170117
  10. OMEPRAZOLE. [Concomitant]
     Active Substance: OMEPRAZOLE
     Dosage: DATE OF LAST DOSE PRIOR TO SAE: 14/SEP/2016
     Route: 065
     Dates: start: 2007
  11. METRONIDAZOLE. [Concomitant]
     Active Substance: METRONIDAZOLE
     Route: 065
     Dates: start: 20170525
  12. TRAMADOL. [Concomitant]
     Active Substance: TRAMADOL
     Route: 065
     Dates: start: 20170525
  13. ACICLOVIR [Concomitant]
     Active Substance: ACYCLOVIR
     Dosage: DATE OF LAST DOSE PRIOR TO SAE: 14/SEP/2016
     Route: 065
     Dates: start: 2017
  14. PREDNISOLONE. [Suspect]
     Active Substance: PREDNISOLONE
     Indication: CHRONIC LYMPHOCYTIC LEUKAEMIA
     Dosage: DATE OF LAST DOSE PRIOR TO SAE: 14/SEP/2016
     Route: 065
     Dates: start: 2016
  15. CYCLOPHOSPHAMIDE. [Suspect]
     Active Substance: CYCLOPHOSPHAMIDE
     Indication: CHRONIC LYMPHOCYTIC LEUKAEMIA
     Dosage: DATE OF LAST DOSE PRIOR TO SAE: 14/SEP/2016
     Route: 065
     Dates: start: 2016
  16. OMEPRAZOLE. [Concomitant]
     Active Substance: OMEPRAZOLE
     Dosage: DATE OF LAST DOSE PRIOR TO SAE: 14/SEP/2016
     Route: 065
     Dates: start: 2007
  17. ALLOPURINOL. [Concomitant]
     Active Substance: ALLOPURINOL
     Route: 065
     Dates: start: 20160425, end: 20160425
  18. BENDAMUSTINE [Suspect]
     Active Substance: BENDAMUSTINE
     Indication: CHRONIC LYMPHOCYTIC LEUKAEMIA
     Dosage: DATE OF LAST DOSE PRIOR TO SAE: 14/SEP/2016 AND ON 28/APR/2016
     Route: 042
     Dates: start: 20160427
  19. RITUXIMAB. [Suspect]
     Active Substance: RITUXIMAB
     Indication: CHRONIC LYMPHOCYTIC LEUKAEMIA
     Dosage: DATE OF LAST DOSE PRIOR TO SAE: 14/SEP/2016
     Route: 065
     Dates: start: 2016
  20. FLUCONAZOLE. [Concomitant]
     Active Substance: FLUCONAZOLE
     Dosage: DATE OF LAST DOSE PRIOR TO SAE: 14/SEP/2016
     Route: 065
     Dates: start: 20170117
  21. SULFAMETHOXAZOLE/TRIMETHOPRIM [Concomitant]
     Active Substance: SULFAMETHOXAZOLE\TRIMETHOPRIM
     Dosage: DATE OF LAST DOSE PRIOR TO SAE: 14/SEP/2016
     Route: 065
     Dates: start: 20170117
  22. POSACONAZOLE [Concomitant]
     Active Substance: POSACONAZOLE
     Dosage: 300 MG/DAY
     Route: 065
     Dates: start: 20170528
  23. SERTRALINE [Concomitant]
     Active Substance: SERTRALINE HYDROCHLORIDE
     Dosage: DATE OF LAST DOSE PRIOR TO SAE: 14/SEP/2016
     Route: 065
     Dates: start: 20161120
  24. MEGESTROL [Concomitant]
     Active Substance: MEGESTROL
     Dosage: DATE OF LAST DOSE PRIOR TO SAE: 14/SEP/2016
     Route: 065
     Dates: start: 20170216

REACTIONS (2)
  - Neutropenia [Recovered/Resolved]
  - Febrile neutropenia [Recovered/Resolved]

NARRATIVE: CASE EVENT DATE: 20160503
